FAERS Safety Report 6458991-3 (Version None)
Quarter: 2009Q4

REPORT INFORMATION
  Report Type: 
  Country: None (occurrence: None)
  Receive Date: 20091125
  Receipt Date: 20091125
  Transmission Date: 20100525
  Serious: Yes (Other)
  Sender: FDA-Public Use
  Company Number: None

PATIENT
  Sex: Female
  Weight: 79.3795 kg

DRUGS (2)
  1. STADOL [Suspect]
     Indication: HEADACHE
     Dates: start: 20091013
  2. COMPAZINE [Suspect]
     Indication: UPPER RESPIRATORY TRACT INFECTION
     Dates: start: 20091013

REACTIONS (4)
  - ANGINA PECTORIS [None]
  - DEHYDRATION [None]
  - DIZZINESS [None]
  - HEART RATE INCREASED [None]
